FAERS Safety Report 17370950 (Version 2)
Quarter: 2020Q1

REPORT INFORMATION
  Report Type: Report from Study
  Country: US (occurrence: US)
  Receive Date: 20200205
  Receipt Date: 20200304
  Transmission Date: 20200409
  Serious: No
  Sender: FDA-Public Use
  Company Number: US-SA-2020SA029170

PATIENT
  Age: 63 Year
  Sex: Female

DRUGS (1)
  1. DUPILUMAB [Suspect]
     Active Substance: DUPILUMAB
     Indication: ASTHMA
     Dosage: 300 MG, QOW
     Route: 058
     Dates: start: 20191216, end: 20200221

REACTIONS (8)
  - Eye swelling [Not Recovered/Not Resolved]
  - Lethargy [Not Recovered/Not Resolved]
  - Nasopharyngitis [Unknown]
  - Drug ineffective [Unknown]
  - Eye pain [Not Recovered/Not Resolved]
  - Headache [Not Recovered/Not Resolved]
  - Fatigue [Not Recovered/Not Resolved]
  - Asthma [Unknown]
